FAERS Safety Report 16370380 (Version 1)
Quarter: 2019Q2

REPORT INFORMATION
  Report Type: Spontaneous
  Country: US (occurrence: US)
  Receive Date: 20190423
  Receipt Date: 20190423
  Transmission Date: 20190711
  Serious: No
  Sender: FDA-Public Use
  Company Number: None

PATIENT
  Sex: Female

DRUGS (1)
  1. CYCLOSPORINE (NON-MOD) 100MG APOTEX [Suspect]
     Active Substance: CYCLOSPORINE
     Indication: ANGIOEDEMA
     Route: 048
     Dates: start: 201901

REACTIONS (4)
  - Nausea [None]
  - Arthralgia [None]
  - Back pain [None]
  - Erythema [None]
